FAERS Safety Report 9395160 (Version 1)
Quarter: 2013Q3

REPORT INFORMATION
  Report Type: Spontaneous
  Country: GB (occurrence: None)
  Receive Date: 20130705
  Receipt Date: 20130705
  Transmission Date: 20140515
  Serious: Yes (Other)
  Sender: FDA-Public Use
  Company Number: AUR-APL-2013-05453

PATIENT
  Age: 21 Year
  Sex: Female
  Weight: 56 kg

DRUGS (3)
  1. RANITIDINE (RANITIDINE) [Suspect]
     Indication: PRODUCT USED FOR UNKNOWN INDICATION
     Dates: end: 20130522
  2. LANSOPRAZOLE (LANSOPRAZOLE) [Concomitant]
  3. TRIMETHOPRIM (ITRIMETHOPRIM) [Concomitant]

REACTIONS (2)
  - Blood urine present [None]
  - Nephritis [None]
